FAERS Safety Report 4837255-5 (Version None)
Quarter: 2005Q4

REPORT INFORMATION
  Report Type: 
  Country: None (occurrence: None)
  Receive Date: 20051122
  Receipt Date: 20051116
  Transmission Date: 20060501
  Serious: Yes (Other)
  Sender: FDA-Public Use
  Company Number: 142266USA

PATIENT
  Sex: Male

DRUGS (3)
  1. RIBAVIRIN [Suspect]
     Dosage: 1200 MILLIGRAM DAILY ORAL
     Route: 048
     Dates: end: 20050401
  2. PEG-INTRON [Suspect]
     Dosage: 150 MICROG/KG 1XWK SUBCUTANEOUS
     Route: 058
     Dates: end: 20050325
  3. ZOLOFT [Concomitant]

REACTIONS (2)
  - PREGNANCY OF PARTNER [None]
  - TRANSMISSION OF DRUG VIA SEMEN [None]
